FAERS Safety Report 8974606 (Version 2)
Quarter: 2013Q1

REPORT INFORMATION
  Report Type: Spontaneous
  Country: CA (occurrence: CA)
  Receive Date: 20121220
  Receipt Date: 20130207
  Transmission Date: 20140127
  Serious: Yes (Other)
  Sender: FDA-Public Use
  Company Number: CA-AMGEN-CANSP2012080773

PATIENT
  Age: 53 Year
  Sex: Male

DRUGS (4)
  1. ENBREL [Suspect]
     Indication: RHEUMATOID ARTHRITIS
     Dosage: UNK
     Dates: start: 20120126, end: 20121207
  2. SULFASALAZINE [Concomitant]
     Dosage: 500 MG, 2 TABLETS 3/DAY
  3. PREDNISONE [Concomitant]
     Dosage: 5 MG, 2.5 TABLETS/DAY
  4. TRIDURAL [Concomitant]
     Dosage: 200 MG, QD

REACTIONS (1)
  - Impaired healing [Not Recovered/Not Resolved]
